FAERS Safety Report 4782302-2 (Version None)
Quarter: 2005Q3

REPORT INFORMATION
  Report Type: 
  Country: None (occurrence: None)
  Receive Date: 20050914
  Receipt Date: 20050511
  Transmission Date: 20060218
  Serious: Yes (Death)
  Sender: FDA-Public Use
  Company Number: 163-20785-05050199

PATIENT
  Age: 4 Year
  Sex: Male

DRUGS (5)
  1. THALOMID [Suspect]
     Indication: BRAIN NEOPLASM MALIGNANT
     Dosage: 50 MG DAILY ORAL
     Route: 048
     Dates: start: 20050113, end: 20050401
  2. MORPHINE [Concomitant]
  3. ATIVAN [Concomitant]
  4. DITROPAN [Concomitant]
  5. MIRALAX [Concomitant]

REACTIONS (2)
  - DEATH [None]
  - DISEASE PROGRESSION [None]
